FAERS Safety Report 6397442-4 (Version None)
Quarter: 2009Q4

REPORT INFORMATION
  Report Type: 
  Country: None (occurrence: None)
  Receive Date: 20091012
  Receipt Date: 20091002
  Transmission Date: 20100525
  Serious: Yes (Hospitalization)
  Sender: FDA-Public Use
  Company Number: PHHY2009JP35219

PATIENT
  Sex: Male

DRUGS (9)
  1. TEGRETOL [Suspect]
     Indication: TRIGEMINAL NEURALGIA
     Dosage: 200 MG/DAY
     Route: 048
     Dates: end: 20090818
  2. ADALAT CC [Concomitant]
     Indication: HYPERTENSION
     Dosage: 20 MG
     Route: 048
  3. PREDONINE [Concomitant]
     Indication: MYOSITIS
     Dosage: 2.5 MG
     Route: 048
  4. PREDONINE [Concomitant]
     Dosage: 500 MG
     Route: 048
  5. PREDONINE [Concomitant]
     Dosage: 50 MG/DAY
     Route: 048
  6. PREDONINE [Concomitant]
     Dosage: 35 MG/DAY
     Route: 048
  7. SOLON [Concomitant]
     Indication: GASTRITIS
     Dosage: 100 MG
     Route: 048
  8. KREMEZIN [Concomitant]
     Indication: RENAL FAILURE
     Dosage: 6 G
     Route: 048
  9. TAKEPRON [Concomitant]
     Indication: GASTRITIS
     Dosage: 15 MG
     Route: 048

REACTIONS (5)
  - BLOOD CREATININE INCREASED [None]
  - BLOOD UREA INCREASED [None]
  - PROTEINURIA [None]
  - RENAL IMPAIRMENT [None]
  - TUBULOINTERSTITIAL NEPHRITIS [None]
